FAERS Safety Report 5423350-9 (Version None)
Quarter: 2007Q3

REPORT INFORMATION
  Report Type: 
  Country: None (occurrence: None)
  Receive Date: 20070730
  Receipt Date: 20070112
  Transmission Date: 20080115
  Serious: Yes (Other)
  Sender: FDA-Public Use
  Company Number: 200615969BWH

PATIENT
  Age: 59 Year
  Sex: Female

DRUGS (6)
  1. AVELOX [Suspect]
     Indication: EAR CONGESTION
     Dosage: 400 MG, ONCE, ORAL
     Route: 048
     Dates: start: 20060901
  2. AVELOX [Suspect]
     Indication: INFLUENZA LIKE ILLNESS
     Dosage: 400 MG, ONCE, ORAL
     Route: 048
     Dates: start: 20060901
  3. AVELOX [Suspect]
     Indication: RHINORRHOEA
     Dosage: 400 MG, ONCE, ORAL
     Route: 048
     Dates: start: 20060901
  4. CENTRUM SILVER [Concomitant]
  5. CALTRATE + D [CALCIUM,VITAMIN D NOS] [Concomitant]
  6. NEXIUM [Concomitant]

REACTIONS (8)
  - ANAPHYLACTIC REACTION [None]
  - ANAPHYLACTIC SHOCK [None]
  - DIZZINESS [None]
  - ERYTHEMA [None]
  - LOSS OF CONSCIOUSNESS [None]
  - PRURITUS [None]
  - THROAT TIGHTNESS [None]
  - URTICARIA [None]
